FAERS Safety Report 8743480 (Version 3)
Quarter: 2013Q1

REPORT INFORMATION
  Report Type: Spontaneous
  Country: US (occurrence: US)
  Receive Date: 20120824
  Receipt Date: 20130114
  Transmission Date: 20140127
  Serious: Yes (Other)
  Sender: FDA-Public Use
  Company Number: US-009507513-1208USA007421

PATIENT
  Age: 17 Year
  Sex: Female
  Weight: 93.88 kg

DRUGS (1)
  1. IMPLANON [Suspect]
     Indication: CONTRACEPTION
     Dosage: UNK
     Route: 059
     Dates: start: 20100327

REACTIONS (5)
  - Convulsion [Unknown]
  - Migraine [Unknown]
  - Breast pain [Unknown]
  - Implant site pain [Unknown]
  - Hot flush [Unknown]
